FAERS Safety Report 8350954-6 (Version None)
Quarter: 2012Q2

REPORT INFORMATION
  Report Type: 
  Country: None (occurrence: None)
  Receive Date: 20120510
  Receipt Date: 20120427
  Transmission Date: 20120825
  Serious: Yes (Other)
  Sender: FDA-Public Use
  Company Number: CH-ELI_LILLY_AND_COMPANY-CH201204009804

PATIENT
  Sex: Male

DRUGS (2)
  1. ZYPREXA [Suspect]
     Dosage: 5 MG, QD
     Route: 048
  2. ZYPREXA [Suspect]
     Dosage: 10 MG, QD
     Route: 048

REACTIONS (2)
  - EPILEPSY [None]
  - HYPOTENSION [None]
